FAERS Safety Report 9171005 (Version 2)
Quarter: 2013Q2

REPORT INFORMATION
  Report Type: Spontaneous
  Country: FR (occurrence: FR)
  Receive Date: 20130319
  Receipt Date: 20130521
  Transmission Date: 20140414
  Serious: No
  Sender: FDA-Public Use
  Company Number: FR-ASTELLAS-2013EU001162

PATIENT
  Age: 74 Year
  Sex: Male
  Weight: 100 kg

DRUGS (6)
  1. VESICARE [Suspect]
     Indication: DYSURIA
     Dosage: UNK MG, UNKNOWN/D
     Route: 048
     Dates: start: 201210
  2. VENLAFAXINE [Suspect]
     Indication: DEPRESSION
     Dosage: UNK MG, UNKNOWN/D
     Route: 048
     Dates: start: 201209, end: 20130115
  3. ATACAND [Suspect]
     Indication: HYPERTENSION
     Dosage: 16 MG, UNKNOWN/D
     Route: 048
     Dates: start: 200801
  4. DIGOXINE [Concomitant]
     Indication: CARDIAC FAILURE
     Dosage: 0.25 MG, UNKNOWN/D
     Route: 048
  5. VERAPAMIL [Concomitant]
     Dosage: UNK UNK, UNKNOWN/D
     Route: 065
  6. PREVISCAN                          /00789001/ [Concomitant]
     Indication: ATRIAL FIBRILLATION
     Dosage: 25 MG, UNKNOWN/D
     Route: 048
     Dates: start: 20110909

REACTIONS (2)
  - Hyponatraemia [Recovered/Resolved]
  - Lower respiratory tract inflammation [Not Recovered/Not Resolved]
